FAERS Safety Report 9750604 (Version 1)
Quarter: 2013Q4

REPORT INFORMATION
  Report Type: Spontaneous
  Country: US (occurrence: US)
  Receive Date: 20131212
  Receipt Date: 20131212
  Transmission Date: 20140711
  Serious: No
  Sender: FDA-Public Use
  Company Number: US-BIOGENIDEC-2013BI098990

PATIENT
  Age: 50 Year
  Sex: Male
  Weight: 88 kg

DRUGS (3)
  1. TECFIDERA [Suspect]
     Indication: PRODUCT USED FOR UNKNOWN INDICATION
     Route: 048
  2. VITAMIN D [Concomitant]
  3. VITAMIN B12 [Concomitant]

REACTIONS (5)
  - Pain [Unknown]
  - Lethargy [Unknown]
  - Sleep disorder [Unknown]
  - Feeling hot [Unknown]
  - Flushing [Unknown]
